FAERS Safety Report 5905455-9 (Version None)
Quarter: 2008Q4

REPORT INFORMATION
  Report Type: 
  Country: None (occurrence: None)
  Receive Date: 20081001
  Receipt Date: 20081001
  Transmission Date: 20090506
  Serious: Yes (Other)
  Sender: FDA-Public Use
  Company Number: None

PATIENT
  Sex: Male
  Weight: 67.1324 kg

DRUGS (1)
  1. PLAVIX [Suspect]
     Indication: ANGINA PECTORIS
     Dosage: 1 TABLET DAILY ORAL
     Route: 048
     Dates: start: 20080908, end: 20080917

REACTIONS (2)
  - ASTHENIA [None]
  - DIARRHOEA [None]
